FAERS Safety Report 8006361-9 (Version None)
Quarter: 2011Q4

REPORT INFORMATION
  Report Type: 
  Country: None (occurrence: None)
  Receive Date: 20111226
  Receipt Date: 20111214
  Transmission Date: 20120403
  Serious: Yes (Other)
  Sender: FDA-Public Use
  Company Number: US-PURDUE-USA-2011-0076208

PATIENT
  Sex: Male
  Weight: 89.796 kg

DRUGS (5)
  1. VICODIN [Suspect]
     Indication: BREAKTHROUGH PAIN
  2. TRAMADOL HCL [Concomitant]
     Indication: BACK PAIN
     Dosage: 50 MG, UNK
     Dates: start: 20101116, end: 20111103
  3. HYDROCODONE [Concomitant]
     Indication: BACK PAIN
     Dosage: 10 MG, TID
     Dates: start: 20101116, end: 20111101
  4. LORAZEPAM [Concomitant]
     Indication: BACK PAIN
     Dosage: 2 MG, HS
     Dates: start: 20110223, end: 20111011
  5. BUTRANS [Suspect]
     Indication: BACK PAIN
     Dosage: 20 MCG/HR, UNK
     Route: 062
     Dates: start: 20110906, end: 20111011

REACTIONS (6)
  - DRUG WITHDRAWAL SYNDROME [None]
  - EXTRAPYRAMIDAL DISORDER [None]
  - SWELLING FACE [None]
  - HYPERHIDROSIS [None]
  - DISTURBANCE IN ATTENTION [None]
  - ABNORMAL BEHAVIOUR [None]
